FAERS Safety Report 7671282-8 (Version None)
Quarter: 2011Q3

REPORT INFORMATION
  Report Type: 
  Country: None (occurrence: None)
  Receive Date: 20110809
  Receipt Date: 20110804
  Transmission Date: 20111222
  Serious: Yes (Life-Threatening, Other)
  Sender: FDA-Public Use
  Company Number: KZ-ABBOTT-11P-230-0841472-00

PATIENT
  Age: 62 Year
  Sex: Male
  Weight: 98 kg

DRUGS (7)
  1. FENTANILL [Concomitant]
     Indication: INDUCTION OF ANAESTHESIA
  2. FENTANILL [Concomitant]
     Indication: MAINTENANCE OF ANAESTHESIA
  3. PIPECURONIUM [Concomitant]
     Indication: MAINTENANCE OF ANAESTHESIA
  4. BRUZEPAML [Concomitant]
     Indication: SEDATIVE THERAPY
  5. SEVOFLURANE [Suspect]
  6. PIPECURONIUM [Concomitant]
     Indication: MUSCLE RELAXANT THERAPY
  7. SEVOFLURANE [Suspect]
     Indication: INDUCTION AND MAINTENANCE OF ANAESTHESIA
     Dosage: 100%
     Route: 055
     Dates: start: 20110711, end: 20110711

REACTIONS (1)
  - POST PROCEDURAL HAEMORRHAGE [None]
